FAERS Safety Report 8665152 (Version 4)
Quarter: 2013Q2

REPORT INFORMATION
  Report Type: Spontaneous
  Country: US (occurrence: US)
  Receive Date: 20120716
  Receipt Date: 20130521
  Transmission Date: 20140414
  Serious: No
  Sender: FDA-Public Use
  Company Number: US-009507513-1207USA001274

PATIENT
  Age: 5 Year
  Sex: Male
  Weight: 16.78 kg

DRUGS (6)
  1. SINGULAIR [Suspect]
     Indication: ASTHMA
     Dosage: 4 MG, QD
     Route: 048
     Dates: start: 20120203, end: 20120620
  2. SINGULAIR [Suspect]
     Indication: WHEEZING
     Dosage: 5 MG, QD
     Route: 048
  3. SINGULAIR [Suspect]
     Indication: COUGH
  4. QVAR [Concomitant]
     Indication: WHEEZING
     Dosage: 80 MCG, UNK
     Route: 055
     Dates: start: 20120119, end: 20120620
  5. QVAR [Concomitant]
     Indication: ASTHMA
     Dosage: 80 MCG, UNK
     Route: 055
     Dates: start: 20120630
  6. QVAR [Concomitant]
     Indication: ASTHMA
     Dosage: UNK
     Route: 048

REACTIONS (3)
  - Facial spasm [Recovered/Resolved]
  - Muscle twitching [Unknown]
  - Overdose [Unknown]
